FAERS Safety Report 24708083 (Version 1)
Quarter: 2024Q4

REPORT INFORMATION
  Report Type: Spontaneous
  Country: US (occurrence: US)
  Receive Date: 20241206
  Receipt Date: 20241206
  Transmission Date: 20250114
  Serious: Yes (Hospitalization, Other)
  Sender: MADRIGAL PHARMACEUTICALS
  Company Number: US-MADRIGAL PHARMACEUTICALS, INC-2024REZ3457

PATIENT

DRUGS (3)
  1. REZDIFFRA [Suspect]
     Active Substance: RESMETIROM
     Indication: Hepatic cirrhosis
     Dosage: 80 MILLIGRAM, QD
     Route: 048
     Dates: start: 202407, end: 20241120
  2. HYDROCHLOROTHIAZIDE [Concomitant]
     Active Substance: HYDROCHLOROTHIAZIDE
     Indication: Hypertension
  3. POTASSIUM [Concomitant]
     Active Substance: POTASSIUM

REACTIONS (3)
  - Hepatic failure [Unknown]
  - Nephrolithiasis [Unknown]
  - Off label use [Unknown]

NARRATIVE: CASE EVENT DATE: 20241029
